FAERS Safety Report 13621106 (Version 1)
Quarter: 2017Q2

REPORT INFORMATION
  Report Type: Spontaneous
  Country: US (occurrence: US)
  Receive Date: 20170607
  Receipt Date: 20170607
  Transmission Date: 20170830
  Serious: No
  Sender: FDA-Public Use
  Company Number: US-TEVA-758599ACC

PATIENT
  Sex: Female

DRUGS (1)
  1. PROPAFENONE HCL SR [Suspect]
     Active Substance: PROPAFENONE HYDROCHLORIDE

REACTIONS (7)
  - Gastrointestinal disorder [Unknown]
  - Blood pressure increased [Unknown]
  - Asthenia [Unknown]
  - Heart rate increased [Unknown]
  - Anxiety [Unknown]
  - Malaise [Unknown]
  - Tremor [Unknown]
